FAERS Safety Report 11103115 (Version 1)
Quarter: 2015Q2

REPORT INFORMATION
  Report Type: Spontaneous
  Country: SE (occurrence: SE)
  Receive Date: 20150511
  Receipt Date: 20150511
  Transmission Date: 20150821
  Serious: Yes (Death)
  Sender: FDA-Public Use
  Company Number: SE-ASTRAZENECA-2015SE42548

PATIENT
  Age: 35 Year
  Sex: Male

DRUGS (10)
  1. BYDUREON [Suspect]
     Active Substance: EXENATIDE
     Indication: DIABETES MELLITUS
     Route: 058
     Dates: start: 20120523
  2. ENALAPRIL [Concomitant]
     Active Substance: ENALAPRIL
  3. NOZINAN [Concomitant]
     Active Substance: LEVOMEPROMAZINE
  4. MINDIAB [Concomitant]
     Active Substance: GLIPIZIDE
  5. INVEGA [Concomitant]
     Active Substance: PALIPERIDONE
  6. ZOPICLONE [Concomitant]
     Active Substance: ZOPICLONE
  7. SIMVASTATIN. [Concomitant]
     Active Substance: SIMVASTATIN
  8. METFORMIN [Concomitant]
     Active Substance: METFORMIN HYDROCHLORIDE
  9. THERALEN [Concomitant]
     Active Substance: TRIMEPRAZINE
     Dosage: ORAL DROPS, SOLUTION
  10. CLOZAPINE. [Concomitant]
     Active Substance: CLOZAPINE

REACTIONS (1)
  - Sudden death [Fatal]

NARRATIVE: CASE EVENT DATE: 20131113
